FAERS Safety Report 7878254-9 (Version None)
Quarter: 2011Q4

REPORT INFORMATION
  Report Type: 
  Country: None (occurrence: None)
  Receive Date: 20111027
  Receipt Date: 20111017
  Transmission Date: 20120403
  Serious: Yes (Other)
  Sender: FDA-Public Use
  Company Number: 2011SP049283

PATIENT
  Age: 40 Year
  Sex: Male

DRUGS (7)
  1. PROCRIT [Concomitant]
  2. VICTRELIS [Suspect]
     Indication: HEPATITIS C
     Dosage: PO
     Route: 048
     Dates: start: 20110601
  3. RIBAVIRIN [Suspect]
     Indication: PRODUCT USED FOR UNKNOWN INDICATION
     Dates: start: 20110501
  4. FORADIL [Concomitant]
  5. PROVENTIL [Concomitant]
  6. NEUPOGEN [Concomitant]
  7. PEGASYS [Suspect]
     Indication: PRODUCT USED FOR UNKNOWN INDICATION
     Dates: start: 20110501

REACTIONS (7)
  - VOMITING [None]
  - DYSPNOEA [None]
  - ABASIA [None]
  - NAUSEA [None]
  - ABDOMINAL PAIN UPPER [None]
  - DIZZINESS [None]
  - COLONIC POLYP [None]
